FAERS Safety Report 6169511-5 (Version None)
Quarter: 2009Q2

REPORT INFORMATION
  Report Type: 
  Country: None (occurrence: None)
  Receive Date: 20090424
  Receipt Date: 20081212
  Transmission Date: 20091009
  Serious: No
  Sender: FDA-Public Use
  Company Number: SPV1-2008-02791

PATIENT
  Age: 18 Year
  Sex: Female

DRUGS (2)
  1. VYVANSE [Suspect]
     Dates: start: 20080101, end: 20080101
  2. CONCERTA LP (METHYLPHENIDATE HYDROCHLORIDE) [Concomitant]

REACTIONS (4)
  - DEPRESSED MOOD [None]
  - DISTURBANCE IN ATTENTION [None]
  - EUPHORIC MOOD [None]
  - MYDRIASIS [None]
